FAERS Safety Report 7575695 (Version 6)
Quarter: 2015Q4

REPORT INFORMATION
  Report Type: Spontaneous
  Country: DE (occurrence: DE)
  Receive Date: 20100908
  Receipt Date: 20151202
  Transmission Date: 20160305
  Serious: Yes (Hospitalization, Other)
  Sender: FDA-Public Use
  Company Number: DE-BIOGENIDEC-2010BI029865

PATIENT
  Age: 28 Year
  Sex: Male
  Weight: 86 kg

DRUGS (11)
  1. NOREPINEPHRINE [Concomitant]
     Active Substance: NOREPINEPHRINE\NOREPINEPHRINE BITARTRATE
     Route: 042
  2. ACETYLCYSTEINE. [Concomitant]
     Active Substance: ACETYLCYSTEINE
  3. MIDAZOLAM [Concomitant]
     Active Substance: MIDAZOLAM\MIDAZOLAM HYDROCHLORIDE
     Route: 042
  4. SUFENTANIL [Concomitant]
     Active Substance: SUFENTANIL
     Route: 042
  5. PANTOZOL [Concomitant]
     Active Substance: PANTOPRAZOLE SODIUM
     Indication: PROPHYLAXIS
     Route: 048
     Dates: start: 201008
  6. TYSABRI [Suspect]
     Active Substance: NATALIZUMAB
     Indication: RELAPSING-REMITTING MULTIPLE SCLEROSIS
     Route: 042
     Dates: start: 200806, end: 200812
  7. POTASSIUM CHLORIDE. [Concomitant]
     Active Substance: POTASSIUM CHLORIDE
     Route: 042
  8. METOPROLOL [Concomitant]
     Active Substance: METOPROLOL
     Dates: end: 201008
  9. TYSABRI [Suspect]
     Active Substance: NATALIZUMAB
     Indication: RELAPSING-REMITTING MULTIPLE SCLEROSIS
     Route: 042
     Dates: start: 20090421, end: 201008
  10. HEPARIN [Concomitant]
     Active Substance: HEPARIN SODIUM
     Route: 042
  11. AT III [Concomitant]
     Route: 042

REACTIONS (7)
  - Acinetobacter bacteraemia [Recovered/Resolved]
  - Necrotising fasciitis [Recovered/Resolved]
  - Multiple sclerosis relapse [Recovered/Resolved]
  - Multi-organ failure [Recovered/Resolved]
  - Septic shock [Recovered/Resolved]
  - Pineocytoma [Unknown]
  - Tachyarrhythmia [Recovered/Resolved]

NARRATIVE: CASE EVENT DATE: 201008
